FAERS Safety Report 9419215 (Version 1)
Quarter: 2013Q3

REPORT INFORMATION
  Report Type: Spontaneous
  Country: US (occurrence: None)
  Receive Date: 20130722
  Receipt Date: 20130722
  Transmission Date: 20140515
  Serious: No
  Sender: FDA-Public Use
  Company Number: None

PATIENT
  Age: 70 Year
  Sex: Male

DRUGS (1)
  1. STIVARGA [Suspect]
     Indication: COLON CANCER
     Dates: start: 201305, end: 201307

REACTIONS (3)
  - Palmar-plantar erythrodysaesthesia syndrome [None]
  - Carcinoembryonic antigen increased [None]
  - Disease progression [None]
